FAERS Safety Report 24670207 (Version 1)
Quarter: 2024Q4

REPORT INFORMATION
  Report Type: Spontaneous
  Country: CN (occurrence: CN)
  Receive Date: 20241127
  Receipt Date: 20241127
  Transmission Date: 20250114
  Serious: Yes (Life-Threatening, Other)
  Sender: GLAND PHARMA LTD
  Company Number: CN-GLANDPHARMA-CN-2024GLNLIT01026

PATIENT
  Age: 81 Year
  Sex: Male

DRUGS (14)
  1. PACLITAXEL [Suspect]
     Active Substance: PACLITAXEL
     Indication: Scrotal cancer
     Route: 065
     Dates: start: 20220713
  2. PACLITAXEL [Suspect]
     Active Substance: PACLITAXEL
     Dosage: 80% OF THE STANDARD DOSE
     Route: 065
     Dates: start: 20220824
  3. PACLITAXEL [Suspect]
     Active Substance: PACLITAXEL
     Dosage: REDUCED DOSE
     Route: 065
     Dates: start: 20221014
  4. CAPECITABINE [Concomitant]
     Active Substance: CAPECITABINE
     Dosage: 2 TABLETS
     Route: 048
  5. RIVOCERANIB [Concomitant]
     Active Substance: RIVOCERANIB
     Route: 065
  6. VINORELBINE [Concomitant]
     Active Substance: VINORELBINE TARTRATE
     Route: 065
  7. CYCLOPHOSPHAMIDE [Concomitant]
     Active Substance: CYCLOPHOSPHAMIDE
     Route: 042
     Dates: start: 20220520
  8. CYCLOPHOSPHAMIDE [Concomitant]
     Active Substance: CYCLOPHOSPHAMIDE
     Route: 042
     Dates: start: 20220610
  9. METHOTREXATE [Concomitant]
     Active Substance: METHOTREXATE
     Route: 042
     Dates: start: 20220520
  10. METHOTREXATE [Concomitant]
     Active Substance: METHOTREXATE
     Route: 042
     Dates: start: 20220520
  11. METHOTREXATE [Concomitant]
     Active Substance: METHOTREXATE
     Route: 042
     Dates: start: 20220610
  12. METHOTREXATE [Concomitant]
     Active Substance: METHOTREXATE
     Route: 042
     Dates: start: 20220610
  13. FLUOROURACIL [Concomitant]
     Active Substance: FLUOROURACIL
     Route: 042
     Dates: start: 20220520
  14. FLUOROURACIL [Concomitant]
     Active Substance: FLUOROURACIL
     Route: 042
     Dates: start: 20220610

REACTIONS (3)
  - Myelosuppression [Unknown]
  - White blood cell count increased [Unknown]
  - Product use in unapproved indication [Unknown]
